FAERS Safety Report 19109661 (Version 2)
Quarter: 2021Q4

REPORT INFORMATION
  Report Type: Report from Study
  Country: JP (occurrence: JP)
  Receive Date: 20210409
  Receipt Date: 20211130
  Transmission Date: 20220303
  Serious: Yes (Other)
  Sender: FDA-Public Use
  Company Number: JP-BAUSCH-BL-2021-002545

PATIENT
  Age: 66 Year
  Sex: Male

DRUGS (5)
  1. BRODALUMAB [Suspect]
     Active Substance: BRODALUMAB
     Indication: Psoriasis
     Dosage: SYRINGE, DURATION: 6 MONTHS 9 DAYS
     Route: 058
     Dates: start: 20180905, end: 20190313
  2. BRODALUMAB [Suspect]
     Active Substance: BRODALUMAB
     Indication: Psoriatic arthropathy
  3. GLYCOSAMINOGLYCANS [Concomitant]
     Active Substance: GLYCOSAMINOGLYCANS
     Indication: Product used for unknown indication
     Dosage: EXTERNAL USE
  4. EURAX [Concomitant]
     Active Substance: CROTAMITON
     Indication: Product used for unknown indication
     Dosage: EXTERNAL USE
  5. TALION [Concomitant]
     Indication: Product used for unknown indication

REACTIONS (2)
  - Neurodermatitis [Recovering/Resolving]
  - Dermatitis atopic [Recovering/Resolving]

NARRATIVE: CASE EVENT DATE: 20190301
